FAERS Safety Report 5728689-5 (Version None)
Quarter: 2008Q2

REPORT INFORMATION
  Report Type: 
  Country: None (occurrence: None)
  Receive Date: 20080430
  Receipt Date: 20080115
  Transmission Date: 20081010
  Serious: No
  Sender: FDA-Public Use
  Company Number: 2008PV033948

PATIENT
  Age: 52 Year
  Sex: Female

DRUGS (1)
  1. SYMLIN [Suspect]
     Indication: DIABETES MELLITUS
     Dosage: SC
     Route: 058
     Dates: start: 20071101

REACTIONS (1)
  - SKIN ODOUR ABNORMAL [None]
